FAERS Safety Report 11539313 (Version 2)
Quarter: 2015Q4

REPORT INFORMATION
  Report Type: Spontaneous
  Country: US (occurrence: US)
  Receive Date: 20150923
  Receipt Date: 20151029
  Transmission Date: 20160304
  Serious: No
  Sender: FDA-Public Use
  Company Number: US-PFIZER INC-2015314726

PATIENT
  Age: 88 Year
  Sex: Female

DRUGS (1)
  1. LYRICA [Suspect]
     Active Substance: PREGABALIN
     Dosage: UNK
     Dates: start: 2015, end: 2015

REACTIONS (4)
  - Pain in extremity [Not Recovered/Not Resolved]
  - Eye disorder [Unknown]
  - Strabismus [Unknown]
  - Eyelid oedema [Unknown]

NARRATIVE: CASE EVENT DATE: 2015
